FAERS Safety Report 9435082 (Version 3)
Quarter: 2014Q4

REPORT INFORMATION
  Report Type: Spontaneous
  Country: US (occurrence: US)
  Receive Date: 20130801
  Receipt Date: 20141031
  Transmission Date: 20150529
  Serious: Yes (Hospitalization, Other)
  Sender: FDA-Public Use
  Company Number: US-BAYER-2013-092702

PATIENT
  Age: 38 Year
  Sex: Female
  Weight: 122.45 kg

DRUGS (7)
  1. TRAZODONE [Concomitant]
     Active Substance: TRAZODONE HYDROCHLORIDE
     Dosage: 50 MG, TID
     Route: 048
  2. MIRENA [Suspect]
     Active Substance: LEVONORGESTREL
     Indication: MENORRHAGIA
     Dosage: 20 MCG/24HR, CONT
     Route: 015
     Dates: start: 20051201, end: 20110124
  3. CYMBALTA [Concomitant]
     Active Substance: DULOXETINE HYDROCHLORIDE
     Dosage: 20 MG, QD
     Route: 048
  4. MIRENA [Suspect]
     Active Substance: LEVONORGESTREL
     Indication: CONTRACEPTION
  5. XANAX [Concomitant]
     Active Substance: ALPRAZOLAM
     Dosage: 0.5 MG, TID
     Route: 048
  6. CELEXA [Concomitant]
     Active Substance: CITALOPRAM HYDROBROMIDE
     Dosage: 20 MG, UNK
     Route: 048
  7. LYRICA [Concomitant]
     Active Substance: PREGABALIN
     Dosage: 50 MG, QD
     Route: 048

REACTIONS (14)
  - Post-traumatic stress disorder [None]
  - Depression [None]
  - Device misuse [None]
  - Abdominal pain [None]
  - Mood swings [None]
  - Embedded device [None]
  - Pain [None]
  - Urinary tract infection [None]
  - Anxiety [None]
  - Loss of consciousness [None]
  - Nightmare [None]
  - Emotional distress [None]
  - Pelvic pain [None]
  - Fear [None]

NARRATIVE: CASE EVENT DATE: 201101
